FAERS Safety Report 5256840-2 (Version None)
Quarter: 2007Q1

REPORT INFORMATION
  Report Type: 
  Country: None (occurrence: None)
  Receive Date: 20070306
  Receipt Date: 20070227
  Transmission Date: 20070707
  Serious: Yes (Hospitalization)
  Sender: FDA-Public Use
  Company Number: NL-SHR-NL-2007-007043

PATIENT
  Age: 33 Year
  Sex: Female

DRUGS (1)
  1. MIRENA [Suspect]
     Indication: MENSTRUAL DISORDER
     Dosage: 20 A?G/DAY, CONT
     Route: 015
     Dates: start: 20070123, end: 20070131

REACTIONS (3)
  - COMPLICATION OF DEVICE INSERTION [None]
  - PULMONARY EMBOLISM [None]
  - SALPINGITIS [None]
